FAERS Safety Report 8997346 (Version 1)
Quarter: 2013Q1

REPORT INFORMATION
  Report Type: Spontaneous
  Country: IT (occurrence: IT)
  Receive Date: 20130104
  Receipt Date: 20130104
  Transmission Date: 20140127
  Serious: Yes (Hospitalization)
  Sender: FDA-Public Use
  Company Number: IT-JNJFOC-20121213960

PATIENT
  Age: 13 Year
  Sex: Male

DRUGS (3)
  1. REMICADE [Suspect]
     Indication: CROHN^S DISEASE
     Dosage: STRENGTH: 100 MG
     Route: 042
     Dates: start: 20120718, end: 20121218
  2. PENTACOL [Concomitant]
     Indication: CROHN^S DISEASE
     Dosage: STRENGTH: 26.5 MG/KG
     Route: 048
     Dates: start: 20080301
  3. CHLORPHENAMINE [Concomitant]
     Indication: PREMEDICATION
     Route: 065
     Dates: start: 20121218, end: 20121218

REACTIONS (5)
  - Dyspnoea [Recovered/Resolved]
  - Nausea [Recovered/Resolved]
  - Rash [Recovered/Resolved]
  - Conjunctival hyperaemia [Recovered/Resolved]
  - Infusion related reaction [Recovered/Resolved]
